FAERS Safety Report 5591573-4 (Version None)
Quarter: 2008Q1

REPORT INFORMATION
  Report Type: 
  Country: None (occurrence: None)
  Receive Date: 20080111
  Receipt Date: 20080104
  Transmission Date: 20080703
  Serious: Yes (Other)
  Sender: FDA-Public Use
  Company Number: JPI-P-002823

PATIENT
  Sex: Male
  Weight: 72.5755 kg

DRUGS (3)
  1. XYREM [Suspect]
     Indication: NARCOLEPSY
     Dosage: 9 GM (4.5 GM, 2 IN 1 D), ORAL
     Route: 048
  2. AMPHETAMINE SALTS (AMFETAMINE SULFATE) [Concomitant]
  3. ALPRAZOLAM [Concomitant]

REACTIONS (8)
  - ALCOHOL USE [None]
  - AMNESIA [None]
  - INSOMNIA [None]
  - LEGAL PROBLEM [None]
  - ROAD TRAFFIC ACCIDENT [None]
  - SLEEP-RELATED EATING DISORDER [None]
  - SOMNAMBULISM [None]
  - STRESS [None]
